FAERS Safety Report 25385391 (Version 1)
Quarter: 2025Q2

REPORT INFORMATION
  Report Type: Spontaneous
  Country: US (occurrence: None)
  Receive Date: 20250602
  Receipt Date: 20250602
  Transmission Date: 20250717
  Serious: Yes (Death)
  Sender: FDA-CTU
  Company Number: None

PATIENT
  Sex: Male

DRUGS (1)
  1. LENALIDOMIDE [Suspect]
     Active Substance: LENALIDOMIDE
     Indication: Plasma cell myeloma
     Dosage: FREQUENCY: 1 CAPSULE BY MOUTH EVERY DAY IN THE EVENING AFTER DIALYSIS ON DIALYSIS DAYS FOR 21 DAYS, THEN OFF FOR 7 DAYS, REPEAT CYCLE
     Route: 048
     Dates: start: 20250520

REACTIONS (1)
  - Death [None]
